FAERS Safety Report 25853781 (Version 1)
Quarter: 2025Q3

REPORT INFORMATION
  Report Type: Spontaneous
  Country: US (occurrence: None)
  Receive Date: 20250925
  Receipt Date: 20250925
  Transmission Date: 20251021
  Serious: Yes (Life-Threatening, Other)
  Sender: FDA-CTU
  Company Number: None

PATIENT
  Age: 79 Year
  Sex: Male
  Weight: 76.5 kg

DRUGS (3)
  1. BREZTRI [Suspect]
     Active Substance: BUDESONIDE\FORMOTEROL\GLYCOPYRROLATE
     Indication: Asthma
     Dosage: OTHER STRENGTH : MCG;?OTHER QUANTITY : 2 PUFF(S);?OTHER FREQUENCY : MORNING + BEDTIME;?
     Route: 055
  2. Atorvastatin 1 daily [Concomitant]
  3. Men^s multivitamin [Concomitant]

REACTIONS (3)
  - Product prescribing issue [None]
  - Off label use [None]
  - Pulmonary thrombosis [None]

NARRATIVE: CASE EVENT DATE: 20250913
